FAERS Safety Report 8915444 (Version 1)
Quarter: 2012Q4

REPORT INFORMATION
  Report Type: Report from Study
  Country: ES (occurrence: ES)
  Receive Date: 20121116
  Receipt Date: 20121116
  Transmission Date: 20130627
  Serious: Yes (Hospitalization)
  Sender: FDA-Public Use
  Company Number: ES-BAXTER-2012BAX023767

PATIENT
  Age: 70 Year
  Sex: Male

DRUGS (8)
  1. GENOXAL [Suspect]
     Indication: CHRONIC LYMPHOCYTIC LEUKAEMIA
     Route: 042
     Dates: start: 20111129, end: 20120404
  2. RITUXIMAB [Suspect]
     Indication: CHRONIC LYMPHOCYTIC LEUKAEMIA
     Route: 042
     Dates: start: 20111130, end: 20120404
  3. VINCRISTINE [Suspect]
     Indication: CHRONIC LYMPHOCYTIC LEUKAEMIA
     Route: 042
     Dates: start: 20111129, end: 20120404
  4. PREDNISOLONE [Suspect]
     Indication: CHRONIC LYMPHOCYTIC LEUKAEMIA
     Route: 042
     Dates: start: 20111129, end: 20120408
  5. PANTOPRAZOL [Concomitant]
     Indication: PROPHYLAXIS
     Route: 048
  6. COMPRECIN [Concomitant]
     Indication: ARRHYTHMIA
     Route: 048
  7. SEPTRIN FORTE [Concomitant]
     Indication: PROPHYLAXIS
     Route: 048
     Dates: start: 20101112
  8. ENTECAVIR [Concomitant]
     Indication: HEPATITIS B
     Route: 048
     Dates: start: 20110303

REACTIONS (1)
  - Sepsis [Recovered/Resolved]
